FAERS Safety Report 8965900 (Version 2)
Quarter: 2016Q1

REPORT INFORMATION
  Report Type: Report from Study
  Country: US (occurrence: US)
  Receive Date: 20121217
  Receipt Date: 20160304
  Transmission Date: 20160526
  Serious: Yes (Hospitalization)
  Sender: FDA-Public Use
  Company Number: US-AMGEN-USASP2012080059

PATIENT
  Age: 59 Year
  Sex: Female

DRUGS (1)
  1. ENBREL [Suspect]
     Active Substance: ETANERCEPT
     Indication: RHEUMATOID ARTHRITIS
     Dosage: 50 MG, QWK
     Route: 065
     Dates: start: 20040324

REACTIONS (8)
  - Cataract [Recovered/Resolved]
  - Hypertension [Recovered/Resolved]
  - Atrioventricular block [Recovered/Resolved]
  - Cerebrovascular accident [Unknown]
  - Mobility decreased [Not Recovered/Not Resolved]
  - Speech disorder [Unknown]
  - Bladder catheterisation [Recovered/Resolved]
  - Thrombosis [Recovered/Resolved]

NARRATIVE: CASE EVENT DATE: 200605
